FAERS Safety Report 4839530-7 (Version None)
Quarter: 2005Q4

REPORT INFORMATION
  Report Type: 
  Country: None (occurrence: None)
  Receive Date: 20051129
  Receipt Date: 20051118
  Transmission Date: 20060501
  Serious: Yes (Other)
  Sender: FDA-Public Use
  Company Number: JP-MERCK-0511USA03610

PATIENT
  Age: 72 Year
  Sex: Male
  Weight: 83 kg

DRUGS (5)
  1. COZAAR [Suspect]
     Indication: HYPERTENSION
     Route: 048
     Dates: start: 20030416, end: 20030508
  2. URINORM [Concomitant]
     Route: 048
     Dates: start: 19981201
  3. LAC-B [Concomitant]
     Route: 048
  4. ATENOLOL [Concomitant]
     Route: 048
     Dates: start: 19980101
  5. GLORIAMIN [Concomitant]
     Route: 048
     Dates: start: 20020101

REACTIONS (1)
  - RHABDOMYOLYSIS [None]
